FAERS Safety Report 4776118-0 (Version None)
Quarter: 2005Q3

REPORT INFORMATION
  Report Type: 
  Country: None (occurrence: None)
  Receive Date: 20050914
  Receipt Date: 20050223
  Transmission Date: 20060218
  Serious: Yes (Other)
  Sender: FDA-Public Use
  Company Number: 163-20785-05020505

PATIENT
  Age: 55 Year
  Sex: Female

DRUGS (6)
  1. THALOMID [Suspect]
     Indication: ERYTHROMELALGIA
     Dosage: 50 MG, DAILY, ORAL
     Route: 048
     Dates: start: 20040929, end: 20041117
  2. OXYCONTIN [Concomitant]
  3. OXYCODONE HCL [Concomitant]
  4. AMBIEN [Concomitant]
  5. TIZANIDINE HCL [Concomitant]
  6. DESIPRAMINE HCL [Concomitant]

REACTIONS (2)
  - ARRHYTHMIA [None]
  - DYSPNOEA [None]
